FAERS Safety Report 8177908-7 (Version None)
Quarter: 2012Q1

REPORT INFORMATION
  Report Type: 
  Country: None (occurrence: None)
  Receive Date: 20120126
  Receipt Date: 20111208
  Transmission Date: 20120608
  Serious: No
  Sender: FDA-Public Use
  Company Number: PHEH2011US008709

PATIENT
  Sex: Male
  Weight: 94.3 kg

DRUGS (9)
  1. DETROL [Concomitant]
  2. GLIPIZIDE W/METFORMIN (GLIPIZIDE, METFORMIN) [Concomitant]
  3. NEXIUM [Concomitant]
  4. GABAPENTIN [Concomitant]
  5. ZANTAC [Concomitant]
  6. FERROUS SULFATE TAB [Concomitant]
  7. AFINITOR [Suspect]
     Dosage: 10 MG EVERY DAY, ORAL
     Route: 048
  8. TEGRETOL [Concomitant]
  9. AMLODIPINE [Concomitant]

REACTIONS (3)
  - PAIN [None]
  - DIZZINESS [None]
  - DYSPLASIA [None]
